FAERS Safety Report 13605485 (Version 1)
Quarter: 2017Q2

REPORT INFORMATION
  Report Type: Spontaneous
  Country: US (occurrence: US)
  Receive Date: 20170602
  Receipt Date: 20170602
  Transmission Date: 20170830
  Serious: Yes (Other)
  Sender: FDA-Public Use
  Company Number: None

PATIENT
  Age: 54 Year
  Sex: Female

DRUGS (7)
  1. FLUOXETINE [Concomitant]
     Active Substance: FLUOXETINE HYDROCHLORIDE
  2. PANTOPRAZOLE 40 MG [Concomitant]
     Active Substance: PANTOPRAZOLE SODIUM
  3. MELOXICAM. [Suspect]
     Active Substance: MELOXICAM
     Indication: PAIN
     Route: 048
     Dates: start: 20170530, end: 20170530
  4. ALPRAZOLAM 0.5 MG [Concomitant]
     Active Substance: ALPRAZOLAM
  5. HYDROCHLOROTHIAZIDE 25 MG [Concomitant]
     Active Substance: HYDROCHLOROTHIAZIDE
  6. BUPROPION 150 MG [Concomitant]
     Active Substance: BUPROPION
  7. MELOXICAM. [Suspect]
     Active Substance: MELOXICAM
     Indication: INFLAMMATION
     Route: 048
     Dates: start: 20170530, end: 20170530

REACTIONS (4)
  - Confusional state [None]
  - Disorientation [None]
  - Vertigo [None]
  - Chills [None]

NARRATIVE: CASE EVENT DATE: 20170530
